FAERS Safety Report 4862641-7 (Version None)
Quarter: 2005Q4

REPORT INFORMATION
  Report Type: 
  Country: None (occurrence: None)
  Receive Date: 20051219
  Receipt Date: 20051219
  Transmission Date: 20060501
  Serious: Yes (Life-Threatening, Hospitalization)
  Sender: FDA-Public Use
  Company Number: None

PATIENT
  Age: 63 Year
  Sex: Female
  Weight: 167.3773 kg

DRUGS (1)
  1. RISPERIDONE [Suspect]
     Indication: OBSESSIVE-COMPULSIVE DISORDER
     Dosage: 0.5 MG   BID   PO
     Route: 048

REACTIONS (2)
  - BODY TEMPERATURE INCREASED [None]
  - LOSS OF CONSCIOUSNESS [None]
